FAERS Safety Report 14350964 (Version 1)
Quarter: 2018Q1

REPORT INFORMATION
  Report Type: Spontaneous
  Country: US (occurrence: US)
  Receive Date: 20180104
  Receipt Date: 20180104
  Transmission Date: 20180509
  Serious: No
  Sender: FDA-Public Use
  Company Number: US-009507513-1712USA014300

PATIENT
  Age: 31 Year
  Sex: Female
  Weight: 72.56 kg

DRUGS (2)
  1. IBUPROFEN. [Concomitant]
     Active Substance: IBUPROFEN
     Dosage: UNK
  2. NEXPLANON [Suspect]
     Active Substance: ETONOGESTREL
     Indication: CONTRACEPTION
     Dosage: 1 IMPLANT, 3 YEARS IMPLANT
     Route: 059

REACTIONS (3)
  - Headache [Unknown]
  - Dizziness [Unknown]
  - Implant site pain [Unknown]

NARRATIVE: CASE EVENT DATE: 201712
